FAERS Safety Report 9528036 (Version 4)
Quarter: 2013Q4

REPORT INFORMATION
  Report Type: Spontaneous
  Country: FR (occurrence: None)
  Receive Date: 20130913
  Receipt Date: 20131119
  Transmission Date: 20140711
  Serious: Yes (Death, Life-Threatening, Hospitalization, Other)
  Sender: FDA-Public Use
  Company Number: 2013FR002492

PATIENT
  Age: 25 Year
  Sex: Male
  Weight: 64 kg

DRUGS (4)
  1. PONATINIB [Suspect]
     Indication: TRANSPLANT
     Route: 048
     Dates: start: 20130703, end: 20130824
  2. CORTANCYL (PREDNISONE) [Concomitant]
  3. EFFENTORA (FENTANYL CITRATE) [Concomitant]
  4. ZELITREX (VALACICLOVIR HYDROCHLORIDE) [Concomitant]

REACTIONS (5)
  - Intracranial pressure increased [None]
  - Hydrocephalus [None]
  - Brain herniation [None]
  - Encephalitis brain stem [None]
  - Encephalitis [None]
